FAERS Safety Report 22305312 (Version 7)
Quarter: 2024Q1

REPORT INFORMATION
  Report Type: Spontaneous
  Country: US (occurrence: US)
  Receive Date: 20230510
  Receipt Date: 20240208
  Transmission Date: 20240409
  Serious: No
  Sender: FDA-Public Use
  Company Number: US-PFIZER INC-PV202200080263

PATIENT
  Age: 67 Year
  Sex: Female

DRUGS (5)
  1. TALZENNA [Suspect]
     Active Substance: TALAZOPARIB TOSYLATE
     Dosage: 0.25 MG CAPSULE, TAKE 4 CAPSULES DAILY FOR 5 DAYS, THEN OFF FOR 2 DAYS AND REPEAT
     Route: 048
  2. TALZENNA [Suspect]
     Active Substance: TALAZOPARIB TOSYLATE
     Dosage: 1 MG, CYCLIC (TAKE 2 CAPSULES DAILY FOR 5 DAYS, THEN OFF FOR 2 DAYS AND REPEAT)
     Route: 048
  3. TALZENNA [Suspect]
     Active Substance: TALAZOPARIB TOSYLATE
     Dosage: 2 DF, CYCLIC (TAKE 2 CAPSULES (0.5 MG) DAILY FOR 5 DAYS, THEN OFF FOR 2 DAYS AND REPEAT)
     Route: 048
  4. TALZENNA [Suspect]
     Active Substance: TALAZOPARIB TOSYLATE
     Dosage: 1 MG, CYCLIC (TAKE 4 CAPSULES DAILY FOR 5 DAYS. THEN OFF FOR 2 DAYS AND REPEAT.)
     Route: 048
  5. TALZENNA [Suspect]
     Active Substance: TALAZOPARIB TOSYLATE
     Dosage: TAKE 4 CAPSULES DAILY FOR 6 DAYS, THEN OFF FOR 1 DAYS AND REPEAT
     Route: 048

REACTIONS (4)
  - Neoplasm progression [Unknown]
  - Laboratory test abnormal [Unknown]
  - Off label use [Unknown]
  - Product use issue [Unknown]
